FAERS Safety Report 16785850 (Version 1)
Quarter: 2019Q3

REPORT INFORMATION
  Report Type: Spontaneous
  Country: FR (occurrence: FR)
  Receive Date: 20190909
  Receipt Date: 20190909
  Transmission Date: 20191005
  Serious: Yes (Other)
  Sender: FDA-Public Use
  Company Number: FR-ABBVIE-19K-056-2914875-00

PATIENT
  Age: 15 Year
  Sex: Male
  Weight: 48 kg

DRUGS (2)
  1. HUMIRA [Suspect]
     Active Substance: ADALIMUMAB
     Indication: CROHN^S DISEASE
     Route: 058
     Dates: start: 201812
  2. IMUREL [Suspect]
     Active Substance: AZATHIOPRINE SODIUM
     Indication: CROHN^S DISEASE
     Dosage: 50 MG, SCORED TABLET
     Route: 048
     Dates: start: 201812

REACTIONS (1)
  - Seborrhoeic dermatitis [Not Recovered/Not Resolved]

NARRATIVE: CASE EVENT DATE: 201812
